FAERS Safety Report 18602130 (Version 2)
Quarter: 2020Q4

REPORT INFORMATION
  Report Type: Spontaneous
  Country: DE (occurrence: DE)
  Receive Date: 20201210
  Receipt Date: 20201221
  Transmission Date: 20210114
  Serious: Yes (Life-Threatening, Hospitalization)
  Sender: FDA-Public Use
  Company Number: DE-FERRINGPH-2020FE08469

PATIENT
  Age: 40 Year
  Sex: Female
  Weight: 88 kg

DRUGS (2)
  1. MINIRIN [Suspect]
     Active Substance: DESMOPRESSIN ACETATE
     Indication: DIABETES INSIPIDUS
     Route: 065
  2. DESMOGALEN [Suspect]
     Active Substance: DESMOPRESSIN ACETATE
     Indication: PRODUCT USED FOR UNKNOWN INDICATION
     Route: 065

REACTIONS (10)
  - Chest pain [Recovering/Resolving]
  - Hypocalcaemia [Recovering/Resolving]
  - Tremor [Recovering/Resolving]
  - Muscle spasms [Recovering/Resolving]
  - Hyponatraemia [Recovering/Resolving]
  - Fluid retention [Recovering/Resolving]
  - Oedema [Recovering/Resolving]
  - Recalled product administered [Recovering/Resolving]
  - Out of specification product use [Recovering/Resolving]
  - Malaise [Unknown]

NARRATIVE: CASE EVENT DATE: 202003
